FAERS Safety Report 17665622 (Version 1)
Quarter: 2020Q2

REPORT INFORMATION
  Report Type: Spontaneous
  Country: US (occurrence: US)
  Receive Date: 20200413
  Receipt Date: 20200413
  Transmission Date: 20200713
  Serious: No
  Sender: FDA-Public Use
  Company Number: None

PATIENT
  Age: 86 Year
  Sex: Female

DRUGS (1)
  1. REPATHA [Suspect]
     Active Substance: EVOLOCUMAB
     Route: 058
     Dates: start: 20191220, end: 20191220

REACTIONS (7)
  - Cystitis [None]
  - Rhinorrhoea [None]
  - Pyrexia [None]
  - Confusional state [None]
  - Blood pressure fluctuation [None]
  - Disorientation [None]
  - Hypertension [None]

NARRATIVE: CASE EVENT DATE: 20191220
